FAERS Safety Report 4746670-X (Version None)
Quarter: 2005Q3

REPORT INFORMATION
  Report Type: 
  Country: None (occurrence: None)
  Receive Date: 20050815
  Receipt Date: 20050803
  Transmission Date: 20060218
  Serious: Yes (Hospitalization)
  Sender: FDA-Public Use
  Company Number: 2005-162

PATIENT
  Sex: Female
  Weight: 65.7716 kg

DRUGS (5)
  1. TRAZODONE HCL TABLETS, USP 100 MG (PLIVA) [Suspect]
     Indication: SLEEP DISORDER
     Dosage: 4 TABS AT BEDTIME
     Dates: start: 20050201, end: 20050720
  2. KLONOPIN [Concomitant]
  3. PRILOSEC [Concomitant]
  4. CYMBALTA [Concomitant]
  5. ZANAFLEX [Concomitant]

REACTIONS (5)
  - BRADYCARDIA [None]
  - DIZZINESS [None]
  - ELECTROCARDIOGRAM ABNORMAL [None]
  - FALL [None]
  - LOSS OF CONSCIOUSNESS [None]
